FAERS Safety Report 6394687-4 (Version None)
Quarter: 2009Q4

REPORT INFORMATION
  Report Type: 
  Country: None (occurrence: None)
  Receive Date: 20091009
  Receipt Date: 20090924
  Transmission Date: 20100525
  Serious: Yes (Hospitalization)
  Sender: FDA-Public Use
  Company Number: PHEH2009US11577

PATIENT
  Sex: Female
  Weight: 22.9 kg

DRUGS (4)
  1. EXJADE [Suspect]
     Indication: IRON OVERLOAD
     Dosage: 375 MG DAILY
     Route: 048
     Dates: end: 20090828
  2. EXJADE [Suspect]
     Dosage: 375 MG, QD
     Dates: start: 20090903
  3. FOLIC ACID [Concomitant]
     Indication: SICKLE CELL ANAEMIA
     Dosage: 1 MG, QD
     Route: 048
     Dates: start: 20020212
  4. AMOXICILLIN [Concomitant]
     Indication: SICKLE CELL ANAEMIA
     Dosage: UNK
     Dates: start: 20021205

REACTIONS (3)
  - HYPERSPLENISM [None]
  - PROCEDURAL PAIN [None]
  - SPLENECTOMY [None]
